FAERS Safety Report 16101801 (Version 1)
Quarter: 2019Q1

REPORT INFORMATION
  Report Type: Spontaneous
  Country: US (occurrence: US)
  Receive Date: 20190321
  Receipt Date: 20190321
  Transmission Date: 20190418
  Serious: No
  Sender: FDA-Public Use
  Company Number: US-ARRAY-2018-04897

PATIENT

DRUGS (2)
  1. MEKTOVI [Suspect]
     Active Substance: BINIMETINIB
     Indication: METASTASIS
     Dosage: 45 MG, BID
     Route: 048
     Dates: start: 20181012
  2. BRAFTOVI [Suspect]
     Active Substance: ENCORAFENIB
     Indication: METASTASIS
     Dosage: 450 MG, QD
     Route: 048
     Dates: start: 20181012

REACTIONS (8)
  - Candida infection [Recovered/Resolved]
  - Visual impairment [Not Recovered/Not Resolved]
  - Product use in unapproved indication [Unknown]
  - Oral candidiasis [Recovered/Resolved]
  - Eye infection [Recovered/Resolved]
  - Weight decreased [Recovered/Resolved]
  - Uveitis [Recovered/Resolved]
  - Vision blurred [Recovered/Resolved]

NARRATIVE: CASE EVENT DATE: 2018
